FAERS Safety Report 20031002 (Version 1)
Quarter: 2021Q4

REPORT INFORMATION
  Report Type: Spontaneous
  Country: US (occurrence: US)
  Receive Date: 20211103
  Receipt Date: 20211103
  Transmission Date: 20220303
  Serious: No
  Sender: FDA-Public Use
  Company Number: US-BAYER-2021A241761

PATIENT
  Age: 66 Year
  Sex: Female

DRUGS (1)
  1. CIPRO [Suspect]
     Active Substance: CIPROFLOXACIN HYDROCHLORIDE
     Dosage: UNK
     Route: 048

REACTIONS (6)
  - Drug hypersensitivity [None]
  - Lip swelling [None]
  - Peripheral swelling [None]
  - Pruritus [None]
  - Urticaria [None]
  - Dysphagia [None]
